FAERS Safety Report 10028869 (Version 2)
Quarter: 2014Q1

REPORT INFORMATION
  Report Type: Spontaneous
  Country: CN (occurrence: CN)
  Receive Date: 20140321
  Receipt Date: 20140321
  Transmission Date: 20141002
  Serious: Yes (Hospitalization)
  Sender: FDA-Public Use
  Company Number: CN-ASTRAZENECA-2014SE17310

PATIENT
  Age: 3 Year
  Sex: Male

DRUGS (4)
  1. PULMICORT RESPULES [Suspect]
     Indication: ASTHMA
     Route: 055
  2. PULMICORT RESPULES [Suspect]
     Indication: ASTHMA
     Route: 055
     Dates: start: 20131230
  3. MONTELUKAST [Concomitant]
  4. ROXITHROMYCIN [Concomitant]

REACTIONS (4)
  - Adrenal atrophy [Recovered/Resolved]
  - Hypersensitivity [Unknown]
  - Blood glucose decreased [Unknown]
  - Abdominal distension [Unknown]
